FAERS Safety Report 4646740-0 (Version None)
Quarter: 2005Q2

REPORT INFORMATION
  Report Type: 
  Country: None (occurrence: None)
  Receive Date: 20050427
  Receipt Date: 20050425
  Transmission Date: 20051028
  Serious: Yes (Other)
  Sender: FDA-Public Use
  Company Number: FR-GLAXOSMITHKLINE-B0379289A

PATIENT
  Age: 38 Year
  Sex: Female

DRUGS (1)
  1. IMIJECT [Suspect]
     Indication: FACIAL PAIN
     Dosage: 5INJ PER DAY
     Route: 058
     Dates: start: 20050324, end: 20050421

REACTIONS (2)
  - DRUG ABUSER [None]
  - DRUG EXPOSURE DURING PREGNANCY [None]
